FAERS Safety Report 5937144-9 (Version None)
Quarter: 2008Q4

REPORT INFORMATION
  Report Type: 
  Country: None (occurrence: None)
  Receive Date: 20081031
  Receipt Date: 20081027
  Transmission Date: 20090506
  Serious: Yes (Hospitalization, Other)
  Sender: FDA-Public Use
  Company Number: US-BAYER-200813424BCC

PATIENT
  Age: 68 Year
  Sex: Male
  Weight: 64 kg

DRUGS (12)
  1. ASPIRIN [Suspect]
     Indication: CORONARY ARTERIAL STENT INSERTION
     Dosage: TOTAL DAILY DOSE: 325 MG  UNIT DOSE: 325 MG
     Route: 048
     Dates: end: 20070228
  2. ASPIRIN [Suspect]
     Dosage: TOTAL DAILY DOSE: 81 MG  UNIT DOSE: 81 MG
     Route: 048
     Dates: start: 20080228
  3. PLAVIX [Suspect]
     Indication: CORONARY ARTERIAL STENT INSERTION
  4. SIMVASTATIN [Concomitant]
     Dates: start: 20080301
  5. LOSARTAN POTASSIUM [Concomitant]
     Dates: start: 20080301
  6. METOPROLOL TARTRATE [Concomitant]
     Dates: start: 20080301
  7. TRAVOPROST [Concomitant]
  8. LITHIUM [Concomitant]
  9. HALOPERIDOL [Concomitant]
  10. DOXAZOSIN MESYLATE [Concomitant]
     Dates: start: 20060401
  11. LISINOPRIL [Concomitant]
     Dates: start: 20080301, end: 20080501
  12. VITAMINS NOS [Concomitant]

REACTIONS (5)
  - CORONARY ARTERY BYPASS [None]
  - FEELING ABNORMAL [None]
  - HAEMORRHAGE [None]
  - ULCER HAEMORRHAGE [None]
  - UNEVALUABLE EVENT [None]
